FAERS Safety Report 8492111-9 (Version None)
Quarter: 2012Q3

REPORT INFORMATION
  Report Type: 
  Country: None (occurrence: None)
  Receive Date: 20120706
  Receipt Date: 20120704
  Transmission Date: 20120928
  Serious: Yes (Hospitalization, Other)
  Sender: FDA-Public Use
  Company Number: US-PFIZER INC-2011US-44058

PATIENT
  Sex: Female

DRUGS (1)
  1. CALAN [Suspect]
     Indication: HYPERTENSION
     Dosage: 240 MG, 1X/DAY
     Route: 065
     Dates: start: 19910101

REACTIONS (2)
  - MYOCARDIAL INFARCTION [None]
  - CONSTIPATION [None]
